FAERS Safety Report 8828974 (Version 3)
Quarter: 2012Q4

REPORT INFORMATION
  Report Type: Report from Study
  Country: GB (occurrence: GB)
  Receive Date: 20121008
  Receipt Date: 20121126
  Transmission Date: 20130627
  Serious: Yes (Death, Hospitalization)
  Sender: FDA-Public Use
  Company Number: GB-ROCHE-1137971

PATIENT
  Sex: Female
  Weight: 59 kg

DRUGS (14)
  1. RITUXIMAB [Suspect]
     Indication: PRODUCT USED FOR UNKNOWN INDICATION
     Dosage: LAST DOSE PRIOR TO SAE WAS 19/Dec/2011
     Route: 065
     Dates: start: 20101020
  2. AMITRIPTYLINE [Concomitant]
     Dosage: each night
     Route: 065
  3. SERETIDE [Concomitant]
     Route: 065
  4. TIOTROPIUM BROMIDE [Concomitant]
     Route: 065
  5. ALENDRONIC ACID [Concomitant]
     Route: 065
  6. PREDNISOLONE [Concomitant]
     Dosage: 10 mg/7.5 mg alternate dose each morning
     Route: 065
  7. PREDNISOLONE [Concomitant]
     Dosage: for 4 more days then 15 mg for one week then 7.5 mg maintained.
     Route: 065
  8. SALBUTAMOL [Concomitant]
     Dosage: 2 puff
     Route: 065
  9. OMEPRAZOLE [Concomitant]
     Route: 065
  10. CO-CODAMOL [Concomitant]
     Dosage: 300mg/500 mg
     Route: 065
  11. METFORMIN [Concomitant]
     Route: 065
  12. FERROUS FUMARATE [Concomitant]
     Route: 065
  13. FUROSEMIDE [Concomitant]
     Route: 065
  14. PRAVASTATIN [Concomitant]
     Dosage: 1 each night
     Route: 065

REACTIONS (6)
  - Idiopathic pulmonary fibrosis [Fatal]
  - Lower respiratory tract infection [Recovered/Resolved]
  - Neutropenia [Recovered/Resolved]
  - Pneumonia [Unknown]
  - Septic shock [Unknown]
  - Dehydration [Unknown]
